FAERS Safety Report 5044943-7 (Version None)
Quarter: 2006Q3

REPORT INFORMATION
  Report Type: 
  Country: None (occurrence: None)
  Receive Date: 20060705
  Receipt Date: 20060622
  Transmission Date: 20061208
  Serious: Yes (Other)
  Sender: FDA-Public Use
  Company Number: 200614279BWH

PATIENT
  Age: 60 Year
  Sex: Male

DRUGS (9)
  1. NEXAVAR [Suspect]
     Indication: RENAL CELL CARCINOMA STAGE UNSPECIFIED
     Dosage: SEE IMAGE
     Route: 048
     Dates: start: 20050912, end: 20051101
  2. NEXAVAR [Suspect]
     Indication: RENAL CELL CARCINOMA STAGE UNSPECIFIED
     Dosage: SEE IMAGE
     Route: 048
     Dates: start: 20051101
  3. ZOCOR [Concomitant]
  4. RANITIDINE [Concomitant]
  5. ATENOLOL [Concomitant]
  6. ASPIRIN [Concomitant]
  7. FLOMAX [Concomitant]
  8. IMODIUM [Concomitant]
  9. FELODIPINE [Concomitant]

REACTIONS (4)
  - ALOPECIA [None]
  - DIARRHOEA [None]
  - RASH [None]
  - SQUAMOUS CELL CARCINOMA [None]
